FAERS Safety Report 9868206 (Version 1)
Quarter: 2014Q1

REPORT INFORMATION
  Report Type: Spontaneous
  Country: CA (occurrence: CA)
  Receive Date: 20140204
  Receipt Date: 20140204
  Transmission Date: 20141002
  Serious: Yes (Other)
  Sender: FDA-Public Use
  Company Number: 2014SP000295

PATIENT
  Age: 69 Year
  Sex: Female

DRUGS (13)
  1. LATUDA [Suspect]
     Indication: SLEEP DISORDER
     Route: 048
     Dates: start: 20131002, end: 20131004
  2. LATUDA [Suspect]
     Indication: BIPOLAR DISORDER
     Route: 048
     Dates: start: 20131002, end: 20131004
  3. CYMBALTA [Suspect]
     Indication: ANXIETY
     Route: 048
     Dates: end: 20140128
  4. CYMBALTA [Suspect]
     Indication: DEPRESSION
     Route: 048
     Dates: end: 20140128
  5. CYMBALTA [Suspect]
     Indication: ANXIETY
     Route: 048
  6. CYMBALTA [Suspect]
     Indication: DEPRESSION
     Route: 048
  7. CYMBALTA [Suspect]
     Indication: ANXIETY
     Route: 048
     Dates: start: 20130906
  8. CYMBALTA [Suspect]
     Indication: DEPRESSION
     Route: 048
     Dates: start: 20130906
  9. VALPROIC ACID [Concomitant]
     Route: 048
  10. CHLORAL HYDRATE [Concomitant]
  11. SEROQUEL XR [Concomitant]
  12. SEROQUEL [Concomitant]
  13. ZOPICLONE [Concomitant]

REACTIONS (1)
  - Epistaxis [Recovered/Resolved]
